FAERS Safety Report 10278914 (Version 2)
Quarter: 2015Q2

REPORT INFORMATION
  Report Type: Report from Study
  Country: US (occurrence: US)
  Receive Date: 20140706
  Receipt Date: 20150415
  Transmission Date: 20150821
  Serious: Yes (Life-Threatening, Hospitalization, Other)
  Sender: FDA-Public Use
  Company Number: US-009507513-1407USA001309

PATIENT
  Age: 69 Year
  Sex: Male
  Weight: 97 kg

DRUGS (14)
  1. ONDANSETRON HYDROCHLORIDE. [Concomitant]
     Active Substance: ONDANSETRON HYDROCHLORIDE
     Indication: VOMITING
  2. FAMOTIDINE. [Concomitant]
     Active Substance: FAMOTIDINE
     Indication: PROPHYLAXIS
     Dosage: 20 MG, 2 IN 1 DAY
     Route: 048
     Dates: start: 20140423
  3. CIPROFLOXACIN. [Concomitant]
     Active Substance: CIPROFLOXACIN
     Indication: ANTIBIOTIC THERAPY
     Dosage: 500 MG, 2 IN 1 DAY
     Route: 048
     Dates: start: 201406
  4. TEMODAR [Suspect]
     Active Substance: TEMOZOLOMIDE
     Indication: GLIOBLASTOMA MULTIFORME
     Dosage: 75 MG/M2, QD
     Route: 048
     Dates: start: 20140522
  5. ARTIFICIAL TEARS (HYPROMELLOSE) [Concomitant]
     Indication: PROPHYLAXIS
     Dosage: UNK
     Dates: start: 20130604
  6. ONDANSETRON HYDROCHLORIDE. [Concomitant]
     Active Substance: ONDANSETRON HYDROCHLORIDE
     Indication: NAUSEA
     Dosage: DAILY DOSE: 8 MG; Q8H, PRN
     Route: 048
     Dates: start: 20140522, end: 20140621
  7. ASPIRIN. [Concomitant]
     Active Substance: ASPIRIN
     Indication: CARDIOVASCULAR EVENT PROPHYLAXIS
     Dosage: 81 MG, 1 IN 1 DAY
     Route: 048
     Dates: start: 20120604, end: 20140604
  8. ATORVASTATIN [Concomitant]
     Active Substance: ATORVASTATIN
     Indication: BLOOD CHOLESTEROL INCREASED
     Dosage: 40 MG, 1 IN 1 DAY
     Route: 048
     Dates: start: 20120917
  9. PRINIVIL [Concomitant]
     Active Substance: LISINOPRIL
     Indication: HYPERTENSION
     Dosage: 20 MG, 1 IN 1 DAY
     Route: 048
     Dates: start: 20091101
  10. ABT-414 [Suspect]
     Active Substance: INVESTIGATIONAL PRODUCT
     Indication: GLIOBLASTOMA MULTIFORME
     Dosage: 251 MG, 1 IN 2 WEEKS
     Route: 042
     Dates: start: 20140522, end: 20140522
  11. HEXADROL [Concomitant]
     Active Substance: DEXAMETHASONE
     Indication: PROPHYLAXIS
     Dosage: 2 MG, 2 IN 1 DAY
     Route: 048
     Dates: start: 20140423
  12. METOPROLOL TARTRATE. [Concomitant]
     Active Substance: METOPROLOL TARTRATE
     Indication: HYPERTENSION
     Dosage: 25 MG, 2 IN 1 DAY
     Route: 048
     Dates: start: 20100209, end: 20140604
  13. CYCLOSPORINE. [Concomitant]
     Active Substance: CYCLOSPORINE
     Indication: PRODUCT USED FOR UNKNOWN INDICATION
     Dosage: 1 GTT, 1 IN 1 DAY
     Route: 047
     Dates: start: 20130129, end: 20140524
  14. MELATONIN [Concomitant]
     Active Substance: MELATONIN
     Indication: PRODUCT USED FOR UNKNOWN INDICATION
     Dosage: DAILY DOSE: 5 MG
     Route: 048
     Dates: start: 201406

REACTIONS (2)
  - Central nervous system haemorrhage [Unknown]
  - Platelet count decreased [Unknown]

NARRATIVE: CASE EVENT DATE: 20140604
